FAERS Safety Report 7731262-0 (Version None)
Quarter: 2011Q3

REPORT INFORMATION
  Report Type: 
  Country: None (occurrence: None)
  Receive Date: 20110906
  Receipt Date: 20110825
  Transmission Date: 20111222
  Serious: Yes (Life-Threatening, Hospitalization)
  Sender: FDA-Public Use
  Company Number: SE-CEPHALON-2011004627

PATIENT
  Sex: Female

DRUGS (3)
  1. LENALIDOMIDE [Suspect]
     Dates: start: 20110207, end: 20110802
  2. TREANDA [Suspect]
     Route: 042
     Dates: start: 20110207
  3. RITUXIMAB [Suspect]
     Dates: start: 20110207

REACTIONS (3)
  - FEBRILE NEUTROPENIA [None]
  - CYTOMEGALOVIRUS INFECTION [None]
  - ACUTE RESPIRATORY DISTRESS SYNDROME [None]
